FAERS Safety Report 17544536 (Version 1)
Quarter: 2020Q1

REPORT INFORMATION
  Report Type: Report from Study
  Country: NL (occurrence: NL)
  Receive Date: 20200316
  Receipt Date: 20200316
  Transmission Date: 20200409
  Serious: Yes (Hospitalization)
  Sender: FDA-Public Use
  Company Number: NL-ROCHE-2563868

PATIENT
  Age: 56 Year
  Sex: Female

DRUGS (2)
  1. OSIMERTINIB. [Suspect]
     Active Substance: OSIMERTINIB
     Indication: NON-SMALL CELL LUNG CANCER
     Dosage: MOST RECENT DOSE OF OSIMERTINIB PRIOR TO SAE ONSET: 18/FEB/2020.
     Route: 048
     Dates: start: 20200114
  2. TRASTUZUMAB EMTANSINE [Suspect]
     Active Substance: ADO-TRASTUZUMAB EMTANSINE
     Indication: NON-SMALL CELL LUNG CANCER
     Dosage: MOST RECENT DOSE OF TRASTUZUMAB EMTANSINE PRIOR TO SAE ONSET: 18/FEB/2020
     Route: 042
     Dates: start: 20200114

REACTIONS (1)
  - Pleural infection [Not Recovered/Not Resolved]

NARRATIVE: CASE EVENT DATE: 20200304
